FAERS Safety Report 26201280 (Version 2)
Quarter: 2025Q4

REPORT INFORMATION
  Report Type: Spontaneous
  Country: RU (occurrence: RU)
  Receive Date: 20251226
  Receipt Date: 20251230
  Transmission Date: 20260117
  Serious: Yes (Death, Life-Threatening, Other)
  Sender: AMGEN
  Company Number: RU-AMGEN-RUSSP2025254753

PATIENT

DRUGS (1)
  1. BLINATUMOMAB [Suspect]
     Active Substance: BLINATUMOMAB
     Indication: Neoplasm malignant
     Dosage: UNK
     Route: 065

REACTIONS (14)
  - Immune effector cell-associated neurotoxicity syndrome [Fatal]
  - Malignant neoplasm progression [Fatal]
  - Pneumonia [Fatal]
  - Mucormycosis [Fatal]
  - Cytomegalovirus infection [Fatal]
  - COVID-19 [Fatal]
  - Sepsis [Fatal]
  - Venoocclusive disease [Fatal]
  - Acute graft versus host disease in liver [Unknown]
  - Acute graft versus host disease in intestine [Unknown]
  - Acute graft versus host disease in skin [Unknown]
  - Cytokine release syndrome [Unknown]
  - Chronic graft versus host disease [Unknown]
  - Neoplasm recurrence [Unknown]
